FAERS Safety Report 10258012 (Version 2)
Quarter: 2014Q3

REPORT INFORMATION
  Report Type: Spontaneous
  Country: US (occurrence: US)
  Receive Date: 20140625
  Receipt Date: 20140825
  Transmission Date: 20150326
  Serious: No
  Sender: FDA-Public Use
  Company Number: US-PFIZER INC-2014171905

PATIENT
  Age: 49 Year
  Sex: Male
  Weight: 117 kg

DRUGS (1)
  1. LYRICA [Suspect]
     Active Substance: PREGABALIN
     Indication: NEUROPATHY PERIPHERAL
     Dosage: UNK
     Dates: end: 201406

REACTIONS (11)
  - Blepharospasm [Unknown]
  - Muscle twitching [Unknown]
  - Back pain [Unknown]
  - Peripheral swelling [Unknown]
  - Mobility decreased [Unknown]
  - Sluggishness [Unknown]
  - Hypoaesthesia [Unknown]
  - Pain [Unknown]
  - Diarrhoea [Unknown]
  - Sciatic nerve neuropathy [Unknown]
  - Insomnia [Unknown]

NARRATIVE: CASE EVENT DATE: 201406
